FAERS Safety Report 21841810 (Version 1)
Quarter: 2023Q1

REPORT INFORMATION
  Report Type: Report from Study
  Country: IT (occurrence: IT)
  Receive Date: 20230110
  Receipt Date: 20230110
  Transmission Date: 20230417
  Serious: Yes (Hospitalization)
  Sender: FDA-Public Use
  Company Number: None

PATIENT
  Age: 77 Year
  Sex: Female

DRUGS (10)
  1. QUETIAPINE [Suspect]
     Active Substance: QUETIAPINE
     Indication: Depression
     Dates: end: 20220604
  2. DULOXETINE [Suspect]
     Active Substance: DULOXETINE
     Indication: Depression
     Dates: end: 20220604
  3. HYDROCHLOROTHIAZIDE\RAMIPRIL [Suspect]
     Active Substance: HYDROCHLOROTHIAZIDE\RAMIPRIL
     Indication: Hypertension
     Dosage: 5/25
     Dates: end: 20220604
  4. CORDARONE [Concomitant]
     Active Substance: AMIODARONE HYDROCHLORIDE
  5. LYRICA [Concomitant]
     Active Substance: PREGABALIN
  6. LEVOTHYROXINE SODIUM [Concomitant]
     Active Substance: LEVOTHYROXINE SODIUM
  7. ATORVASTATIN [Concomitant]
     Active Substance: ATORVASTATIN
  8. ELIQUIS [Concomitant]
     Active Substance: APIXABAN
  9. LAMICTAL [Concomitant]
     Active Substance: LAMOTRIGINE
  10. AMITRIPTYLINE [Concomitant]
     Active Substance: AMITRIPTYLINE

REACTIONS (2)
  - Hyponatraemia [Not Recovered/Not Resolved]
  - Hypokalaemia [Not Recovered/Not Resolved]

NARRATIVE: CASE EVENT DATE: 20220604
